FAERS Safety Report 8875967 (Version 2)
Quarter: 2012Q4

REPORT INFORMATION
  Report Type: 
  Country: TR (occurrence: TR)
  Receive Date: 20121030
  Receipt Date: 20121031
  Transmission Date: 20130627
  Serious: Yes (Death, Other)
  Sender: FDA-Public Use
  Company Number: PHHY2012TR096979

PATIENT
  Age: 59 Year
  Sex: Female

DRUGS (5)
  1. PACLITAXEL [Suspect]
     Dosage: 80 mg/m2, total dose of 120 mg
  2. PACLITAXEL [Suspect]
     Dosage: 80 mg/m2
  3. DEXAMETHASONE [Concomitant]
     Dosage: 16 mg, UNK
  4. RANITIDINE [Concomitant]
     Dosage: 300 mg, UNK
  5. GRANISETRON [Concomitant]
     Dosage: 3 mg, UNK

REACTIONS (9)
  - Death [Fatal]
  - Encephalopathy [Recovered/Resolved]
  - Confusional state [Recovered/Resolved]
  - Abnormal behaviour [Recovered/Resolved]
  - Hallucination [Recovered/Resolved]
  - Neurological symptom [Recovered/Resolved]
  - Sinus tachycardia [Recovered/Resolved]
  - Blood pressure increased [Recovered/Resolved]
  - Malignant neoplasm progression [Unknown]
